FAERS Safety Report 19273090 (Version 2)
Quarter: 2021Q3

REPORT INFORMATION
  Report Type: Other
  Country: CA (occurrence: CA)
  Receive Date: 20210518
  Receipt Date: 20210716
  Transmission Date: 20211014
  Serious: Yes (Other)
  Sender: FDA-Public Use
  Company Number: CA-CELLTRION INC.-2021CA006573

PATIENT

DRUGS (8)
  1. CALCIUM [Concomitant]
     Active Substance: CALCIUM
  2. LAMIVUDINE. [Concomitant]
     Active Substance: LAMIVUDINE
     Dosage: 100 MG
  3. SULFASALAZINE. [Concomitant]
     Active Substance: SULFASALAZINE
     Dosage: 500 MG
  4. RITUXIMAB (UNKNOWN) [Suspect]
     Active Substance: RITUXIMAB
     Indication: RHEUMATOID ARTHRITIS
     Dosage: 1000 MG
     Route: 042
  5. HYDROXYCHLOROQUINE [Concomitant]
     Active Substance: HYDROXYCHLOROQUINE
     Dosage: 200 MG, 2 EVERY 1 DAYS
  6. ELIQUIS [Concomitant]
     Active Substance: APIXABAN
  7. FUROSEMIDE. [Concomitant]
     Active Substance: FUROSEMIDE
  8. VITAMIN D3 [Concomitant]
     Active Substance: CHOLECALCIFEROL

REACTIONS (3)
  - Cutaneous vasculitis [Unknown]
  - Polyneuropathy [Unknown]
  - Off label use [Unknown]
